FAERS Safety Report 19915846 (Version 1)
Quarter: 2021Q4

REPORT INFORMATION
  Report Type: Spontaneous
  Country: US (occurrence: US)
  Receive Date: 20211004
  Receipt Date: 20211004
  Transmission Date: 20220303
  Serious: No
  Sender: FDA-Public Use
  Company Number: US-OTSUKA-2020_025203

PATIENT
  Age: 35 Year
  Sex: Female

DRUGS (1)
  1. ABILIFY MAINTENA [Suspect]
     Active Substance: ARIPIPRAZOLE
     Indication: Schizophrenia
     Dosage: 300 MG INJECTED IN HER ARM MONTHLY
     Route: 030
     Dates: start: 202009

REACTIONS (9)
  - Fear of death [Unknown]
  - Feeling abnormal [Unknown]
  - Limb discomfort [Unknown]
  - Head discomfort [Unknown]
  - Panic disorder [Unknown]
  - Dyspnoea [Unknown]
  - Heart rate increased [Unknown]
  - Dry mouth [Not Recovered/Not Resolved]
  - Underdose [Unknown]

NARRATIVE: CASE EVENT DATE: 20200901
